FAERS Safety Report 4386295-1 (Version None)
Quarter: 2004Q2

REPORT INFORMATION
  Report Type: 
  Country: None (occurrence: None)
  Receive Date: 20040622
  Receipt Date: 20040607
  Transmission Date: 20050107
  Serious: Yes (Hospitalization)
  Sender: FDA-Public Use
  Company Number: 191056

PATIENT
  Sex: Male
  Weight: 50 kg

DRUGS (1)
  1. AVONEX [Suspect]
     Indication: MULTIPLE SCLEROSIS
     Dosage: 30 MCG QD IM
     Route: 030
     Dates: start: 20020101, end: 20040501

REACTIONS (2)
  - DEPRESSION [None]
  - PERSECUTORY DELUSION [None]
